FAERS Safety Report 11107210 (Version 2)
Quarter: 2015Q3

REPORT INFORMATION
  Report Type: Spontaneous
  Country: US (occurrence: US)
  Receive Date: 20150512
  Receipt Date: 20150804
  Transmission Date: 20151125
  Serious: Yes (Death, Hospitalization, Other)
  Sender: FDA-Public Use
  Company Number: US-PFIZER INC-2015158430

PATIENT
  Age: 60 Year
  Sex: Male

DRUGS (10)
  1. TESTOSTERONE CIPIONATE [Suspect]
     Active Substance: TESTOSTERONE
     Indication: ERECTILE DYSFUNCTION
  2. ISOSORBE [Concomitant]
     Indication: CHEST PAIN
     Dosage: 30 MG, UNK
     Dates: start: 201205, end: 201308
  3. TESTOSTERONE CIPIONATE [Suspect]
     Active Substance: TESTOSTERONE
     Indication: LIBIDO DECREASED
  4. ANDROGEL [Suspect]
     Active Substance: TESTOSTERONE
     Indication: LIBIDO DECREASED
     Dosage: 5 %, 2.5 %, 1 % AND BASED ON TESTOSTERONE LEVELS, 1X/DAY (ONCE PER DAY, MISSED SEVERAL DOSES)
     Dates: start: 201202, end: 201206
  5. TESTOSTERONE CIPIONATE [Suspect]
     Active Substance: TESTOSTERONE
     Indication: HORMONE REPLACEMENT THERAPY
     Dosage: 200 MG, EVERY TWO WEEKS
     Route: 030
     Dates: start: 201303, end: 201307
  6. ANDROGEL [Suspect]
     Active Substance: TESTOSTERONE
     Indication: ERECTILE DYSFUNCTION
     Dosage: 5 %, 2.5 %, 1 % AND BASED ON TESTOSTERONE LEVELS, 1X/DAY (ONCE PER DAY, MISSED SEVERAL DOSES, COST)
     Dates: start: 201207, end: 201302
  7. ANDROGEL [Suspect]
     Active Substance: TESTOSTERONE
     Indication: HORMONE REPLACEMENT THERAPY
     Dosage: 5 %, 2.5 %, 1 % AND BASED ON TESTOSTERONE LEVELS, 1X/DAY (ONCE PER DAY STOPPED DUE TO COST)
     Dates: start: 20110506, end: 201110
  8. DEPO-TESTOSTERONE [Suspect]
     Active Substance: TESTOSTERONE CYPIONATE
     Indication: HORMONE REPLACEMENT THERAPY
     Dosage: UNK
     Dates: start: 20110506, end: 201307
  9. LEVOTHYROXIN [Concomitant]
     Active Substance: LEVOTHYROXINE
     Indication: HYPOTHYROIDISM
     Dosage: 112 ?G, UNK
     Dates: start: 201203, end: 201308
  10. EPLERENONE. [Concomitant]
     Active Substance: EPLERENONE
     Indication: HYPERTENSION
     Dosage: 25 MG, UNK
     Dates: start: 201209, end: 201308

REACTIONS (2)
  - Myocardial infarction [Fatal]
  - Cardiac arrest [Fatal]

NARRATIVE: CASE EVENT DATE: 20130813
